FAERS Safety Report 5268621-4 (Version None)
Quarter: 2007Q1

REPORT INFORMATION
  Report Type: 
  Country: None (occurrence: None)
  Receive Date: 20070313
  Receipt Date: 20070228
  Transmission Date: 20070707
  Serious: Yes (Death)
  Sender: FDA-Public Use
  Company Number: POMP-10966

PATIENT
  Age: 10 Month
  Sex: Female
  Weight: 7.4 kg

DRUGS (3)
  1. MYOZYME [Suspect]
     Indication: GLYCOGEN STORAGE DISEASE TYPE II
     Dosage: 20 MG/KG Q2WKS IV
     Route: 042
     Dates: start: 20060927, end: 20070131
  2. CARVEDILOL [Concomitant]
  3. CAPTOPRIL [Concomitant]

REACTIONS (8)
  - BRADYCARDIA [None]
  - BRAIN OEDEMA [None]
  - CARDIOGENIC SHOCK [None]
  - CARDIOMYOPATHY [None]
  - CYANOSIS [None]
  - DISEASE PROGRESSION [None]
  - PYREXIA [None]
  - TACHYCARDIA [None]
